FAERS Safety Report 21712348 (Version 2)
Quarter: 2022Q4

REPORT INFORMATION
  Report Type: Report from Study
  Country: MX (occurrence: MX)
  Receive Date: 20221212
  Receipt Date: 20221224
  Transmission Date: 20230113
  Serious: Yes (Other)
  Sender: FDA-Public Use
  Company Number: MX-002147023-NVSC2022MX286681

PATIENT
  Sex: Female
  Weight: 50 kg

DRUGS (2)
  1. EXFORGE [Suspect]
     Active Substance: AMLODIPINE BESYLATE\VALSARTAN
     Indication: Hypertension
     Dosage: 1 DOSAGE FORM, QD, (50/160 MG), STOP: BEGINNING OF 2019
     Route: 048
     Dates: start: 2014, end: 2019
  2. EXFORGE [Suspect]
     Active Substance: AMLODIPINE BESYLATE\VALSARTAN
     Dosage: 0.5 DOSAGE FORM, QD
     Route: 048
     Dates: start: 2019

REACTIONS (8)
  - Cerebral infarction [Recovered/Resolved with Sequelae]
  - Gait disturbance [Recovering/Resolving]
  - Speech disorder [Recovering/Resolving]
  - Asthenia [Recovered/Resolved]
  - Disorientation [Recovered/Resolved]
  - Hypotension [Recovered/Resolved]
  - Memory impairment [Unknown]
  - Product use issue [Not Recovered/Not Resolved]

NARRATIVE: CASE EVENT DATE: 20190101
